FAERS Safety Report 5595106-8 (Version None)
Quarter: 2008Q1

REPORT INFORMATION
  Report Type: 
  Country: None (occurrence: None)
  Receive Date: 20080117
  Receipt Date: 20080110
  Transmission Date: 20080703
  Serious: Yes (Hospitalization)
  Sender: FDA-Public Use
  Company Number: US-ROXANE LABORATORIES, INC-2008-DE-00187GD

PATIENT
  Age: 52 Year
  Sex: Male

DRUGS (1)
  1. PREDNISONE TAB [Suspect]
     Indication: PRODUCTIVE COUGH
     Route: 048

REACTIONS (5)
  - DRUG INEFFECTIVE [None]
  - PNEUMOCYSTIS JIROVECI INFECTION [None]
  - PNEUMONIA [None]
  - STREPTOCOCCAL INFECTION [None]
  - WEIGHT DECREASED [None]
